FAERS Safety Report 4988704-3 (Version None)
Quarter: 2006Q2

REPORT INFORMATION
  Report Type: 
  Country: None (occurrence: None)
  Receive Date: 20060502
  Receipt Date: 20051004
  Transmission Date: 20061013
  Serious: Yes (Death, Hospitalization)
  Sender: FDA-Public Use
  Company Number: US-MERCK-0510USA02702

PATIENT
  Age: 73 Year
  Sex: Male
  Weight: 77 kg

DRUGS (3)
  1. VIOXX [Suspect]
     Indication: ARTHRITIS
     Route: 048
     Dates: start: 19990501, end: 20040101
  2. VASOTEC [Concomitant]
     Route: 048
  3. ATENOLOL [Concomitant]
     Route: 048

REACTIONS (2)
  - CORONARY ARTERY DISEASE [None]
  - SMALL CELL LUNG CANCER METASTATIC [None]
